FAERS Safety Report 23717564 (Version 2)
Quarter: 2025Q2

REPORT INFORMATION
  Report Type: Report from Study
  Country: DE (occurrence: DE)
  Receive Date: 20240408
  Receipt Date: 20250603
  Transmission Date: 20250716
  Serious: Yes (Hospitalization)
  Sender: ZEALAND PHARMACEUTICALS
  Company Number: DE-ZPPROD-ZP23DE000569

PATIENT
  Age: 0 Year
  Sex: Male
  Weight: 6.3 kg

DRUGS (2)
  1. DASIGLUCAGON [Suspect]
     Active Substance: DASIGLUCAGON
     Indication: Hyperinsulinism
     Route: 058
     Dates: start: 20230425, end: 20231019
  2. OCTREOTIDE [Concomitant]
     Active Substance: OCTREOTIDE
     Indication: Hyperinsulinism
     Route: 058
     Dates: start: 20230425, end: 20231019

REACTIONS (4)
  - Dermatitis [Recovered/Resolved with Sequelae]
  - Hypernatraemia [Recovered/Resolved]
  - Staphylococcal infection [Recovered/Resolved]
  - Pulmonary oedema [Recovered/Resolved]

NARRATIVE: CASE EVENT DATE: 20230601
